FAERS Safety Report 8106008 (Version 3)
Quarter: 2013Q4

REPORT INFORMATION
  Report Type: Spontaneous
  Country: US (occurrence: US)
  Receive Date: 20110825
  Receipt Date: 20131127
  Transmission Date: 20140711
  Serious: Yes (Other)
  Sender: FDA-Public Use
  Company Number: US-BAYER-2011-075565

PATIENT
  Age: 31 Year
  Sex: Female
  Weight: 83.9 kg

DRUGS (5)
  1. YAZ [Suspect]
     Indication: CONTRACEPTION
     Dosage: UNK
     Dates: start: 2008, end: 2010
  2. PRISTIQ [Concomitant]
     Indication: DEPRESSION
     Dosage: UNK
     Dates: start: 2009, end: 2010
  3. PRISTIQ [Concomitant]
     Indication: DEPRESSION
     Dosage: UNK
     Route: 048
     Dates: start: 20090501
  4. LAMISIL [Concomitant]
     Dosage: UNK
     Route: 048
     Dates: start: 20090716
  5. NAPROXEN [Concomitant]
     Dosage: UNK
     Route: 048
     Dates: start: 20090808

REACTIONS (2)
  - Gallbladder injury [Unknown]
  - Cholecystitis [None]
